FAERS Safety Report 7757300-7 (Version None)
Quarter: 2011Q3

REPORT INFORMATION
  Report Type: 
  Country: None (occurrence: None)
  Receive Date: 20110916
  Receipt Date: 20110915
  Transmission Date: 20111222
  Serious: Yes (Life-Threatening, Hospitalization, Other)
  Sender: FDA-Public Use
  Company Number: JP-B.I. PHARMACEUTICALS,INC./RIDGEFIELD-2011-BP-20384NB

PATIENT
  Age: 69 Year
  Sex: Male
  Weight: 74.8 kg

DRUGS (2)
  1. PRADAXA [Suspect]
     Dosage: 300 MG
     Route: 048
     Dates: start: 20110724, end: 20110810
  2. DIGOXIN [Concomitant]

REACTIONS (7)
  - HEPATIC FAILURE [None]
  - ANEURYSM RUPTURED [None]
  - HAEMORRHAGE [None]
  - GASTROINTESTINAL HAEMORRHAGE [None]
  - HAEMATEMESIS [None]
  - POST PROCEDURAL HAEMORRHAGE [None]
  - PORTAL VEIN OCCLUSION [None]
